FAERS Safety Report 16726034 (Version 1)
Quarter: 2019Q3

REPORT INFORMATION
  Report Type: Spontaneous
  Country: JP (occurrence: JP)
  Receive Date: 20190821
  Receipt Date: 20190821
  Transmission Date: 20191005
  Serious: Yes (Other)
  Sender: FDA-Public Use
  Company Number: JP-CELGENEUS-JPN-20190805261

PATIENT
  Age: 68 Year
  Sex: Male

DRUGS (1)
  1. ABRAXANE [Suspect]
     Active Substance: PACLITAXEL
     Indication: PRODUCT USED FOR UNKNOWN INDICATION
     Dosage: 200 MILLIGRAM
     Route: 041
     Dates: start: 20190611

REACTIONS (1)
  - Macular oedema [Not Recovered/Not Resolved]

NARRATIVE: CASE EVENT DATE: 20190611
